FAERS Safety Report 5215224-3 (Version None)
Quarter: 2007Q1

REPORT INFORMATION
  Report Type: 
  Country: None (occurrence: None)
  Receive Date: 20070122
  Receipt Date: 20070111
  Transmission Date: 20070707
  Serious: Yes (Hospitalization, Other)
  Sender: FDA-Public Use
  Company Number: US-PFIZER INC-2007004355

PATIENT
  Sex: Male
  Weight: 78.5 kg

DRUGS (7)
  1. DILANTIN [Suspect]
     Indication: CONVULSION
  2. TRICOR [Concomitant]
  3. GLUCOTROL [Concomitant]
  4. FUROSEMIDE [Concomitant]
  5. NORVASC [Concomitant]
  6. METOPROLOL SUCCINATE [Concomitant]
  7. NITROGLYCERIN [Concomitant]
     Route: 062

REACTIONS (2)
  - CONVULSION [None]
  - DRUG LEVEL BELOW THERAPEUTIC [None]
